FAERS Safety Report 6417491-7 (Version None)
Quarter: 2009Q4

REPORT INFORMATION
  Report Type: 
  Country: None (occurrence: None)
  Receive Date: 20091028
  Receipt Date: 20091019
  Transmission Date: 20100525
  Serious: Yes (Other)
  Sender: FDA-Public Use
  Company Number: US-BRISTOL-MYERS SQUIBB COMPANY-14822175

PATIENT
  Age: 36 Year
  Sex: Female

DRUGS (5)
  1. CARBOPLATIN [Suspect]
  2. PACLITAXEL [Suspect]
  3. PREDNISOLONE [Suspect]
  4. TACROLIMUS [Suspect]
  5. RAPAMYCIN [Suspect]

REACTIONS (2)
  - LIVER TRANSPLANT [None]
  - LIVER TRANSPLANT REJECTION [None]
